FAERS Safety Report 4642492-9 (Version None)
Quarter: 2005Q2

REPORT INFORMATION
  Report Type: 
  Country: None (occurrence: None)
  Receive Date: 20050420
  Receipt Date: 20050420
  Transmission Date: 20051028
  Serious: Yes (Hospitalization)
  Sender: FDA-Public Use
  Company Number: None

PATIENT
  Sex: Male
  Weight: 68.0396 kg

DRUGS (2)
  1. PAXIL CR [Suspect]
     Indication: ANXIETY
     Dosage: 20MG 2 X DAY ORAL
     Route: 048
     Dates: start: 20050103, end: 20050315
  2. PAXIL [Suspect]
     Indication: ANXIETY
     Dosage: 30MG  3 X DAY ORAL
     Route: 048
     Dates: start: 20040315, end: 20050405

REACTIONS (13)
  - ABDOMINAL PAIN UPPER [None]
  - ABNORMAL BEHAVIOUR [None]
  - CRYING [None]
  - DISORIENTATION [None]
  - DRUG WITHDRAWAL SYNDROME [None]
  - FEELING ABNORMAL [None]
  - FEELING OF DESPAIR [None]
  - GAIT DISTURBANCE [None]
  - HALLUCINATION [None]
  - IMPAIRED WORK ABILITY [None]
  - IRRITABILITY [None]
  - MALAISE [None]
  - SEROTONIN SYNDROME [None]
